FAERS Safety Report 4710094-1 (Version None)
Quarter: 2005Q3

REPORT INFORMATION
  Report Type: 
  Country: None (occurrence: None)
  Receive Date: 20050708
  Receipt Date: 20050708
  Transmission Date: 20060218
  Serious: Yes (Hospitalization)
  Sender: FDA-Public Use
  Company Number: None

PATIENT
  Age: 55 Year
  Sex: Male

DRUGS (9)
  1. EPIRUBICIN [Suspect]
  2. CISPLATIN [Suspect]
  3. FLUOROURACIL [Suspect]
  4. RADIATION [Suspect]
  5. TYLOX [Concomitant]
  6. NEXIUM [Concomitant]
  7. RESTORIL [Concomitant]
  8. ATIVAN [Concomitant]
  9. MULTI-VITAMIN [Concomitant]

REACTIONS (5)
  - ABDOMINAL HERNIA [None]
  - ABDOMINAL PAIN UPPER [None]
  - ANASTOMOTIC LEAK [None]
  - MEDICAL DEVICE COMPLICATION [None]
  - WEIGHT DECREASED [None]
